FAERS Safety Report 25962866 (Version 1)
Quarter: 2025Q4

REPORT INFORMATION
  Report Type: Spontaneous
  Country: US (occurrence: None)
  Receive Date: 20251026
  Receipt Date: 20251026
  Transmission Date: 20260118
  Serious: Yes (Death, Life-Threatening, Hospitalization)
  Sender: FDA-CTU
  Company Number: None

PATIENT
  Age: 67 Year
  Sex: Male
  Weight: 62.1 kg

DRUGS (9)
  1. CAPECITABINE [Suspect]
     Active Substance: CAPECITABINE
     Indication: Hepatic neuroendocrine tumour
     Dosage: OTHER QUANTITY : 2 TABLET(S);?FREQUENCY : TWICE A DAY;?
     Route: 048
     Dates: start: 20250825, end: 20250907
  2. ATORVASTATIN [Concomitant]
     Active Substance: ATORVASTATIN
  3. LOSARTAN POTASSIUM [Concomitant]
     Active Substance: LOSARTAN POTASSIUM
  4. OZEMPIC [Concomitant]
     Active Substance: SEMAGLUTIDE
  5. METFORMIN [Concomitant]
     Active Substance: METFORMIN HYDROCHLORIDE
  6. HYDROCHLOROTHIAZIDE [Concomitant]
     Active Substance: HYDROCHLOROTHIAZIDE
  7. icosapent ethyl 1 [Concomitant]
  8. IRON [Concomitant]
     Active Substance: IRON
  9. VITAMIN D3 [Concomitant]
     Active Substance: CHOLECALCIFEROL

REACTIONS (25)
  - Erythema [None]
  - Palmar-plantar erythrodysaesthesia syndrome [None]
  - Dysgeusia [None]
  - Decreased appetite [None]
  - Stomatitis [None]
  - Oesophageal pain [None]
  - Hiccups [None]
  - Chromaturia [None]
  - Heart rate decreased [None]
  - Dehydration [None]
  - Enterocolitis [None]
  - Toxicity to various agents [None]
  - Scrotal pain [None]
  - Cytopenia [None]
  - Cognitive disorder [None]
  - Blood pressure decreased [None]
  - Pseudomonas infection [None]
  - Skin exfoliation [None]
  - Fluid retention [None]
  - Renal impairment [None]
  - Dihydropyrimidine dehydrogenase deficiency [None]
  - Skin discharge [None]
  - Malnutrition [None]
  - Dialysis [None]
  - Neutropenic colitis [None]

NARRATIVE: CASE EVENT DATE: 20250901
